FAERS Safety Report 20838590 (Version 4)
Quarter: 2023Q1

REPORT INFORMATION
  Report Type: Report from Study
  Country: CA (occurrence: CA)
  Receive Date: 20220517
  Receipt Date: 20230221
  Transmission Date: 20230418
  Serious: Yes (Other)
  Sender: FDA-Public Use
  Company Number: CA-TAKEDA-2021TUS057197

PATIENT
  Age: 55 Year
  Sex: Male

DRUGS (5)
  1. BRIGATINIB [Suspect]
     Active Substance: BRIGATINIB
     Indication: Non-small cell lung cancer
     Dosage: 90 MILLIGRAM, QD
     Route: 048
     Dates: start: 20210901
  2. BRIGATINIB [Suspect]
     Active Substance: BRIGATINIB
     Dosage: 180 MILLIGRAM, QD
     Route: 048
  3. BRIGATINIB [Suspect]
     Active Substance: BRIGATINIB
     Dosage: 120 MILLIGRAM, QD
     Route: 048
     Dates: end: 202205
  4. BRIGATINIB [Suspect]
     Active Substance: BRIGATINIB
     Dosage: 30 MILLIGRAM
     Route: 048
  5. ZOPICLONE [Suspect]
     Active Substance: ZOPICLONE
     Indication: Product used for unknown indication
     Dosage: UNK
     Route: 065

REACTIONS (23)
  - Metastases to central nervous system [Unknown]
  - Diabetes mellitus [Unknown]
  - Neuropathy peripheral [Unknown]
  - Fall [Unknown]
  - Vertigo [Unknown]
  - Ear discomfort [Recovered/Resolved]
  - Headache [Recovering/Resolving]
  - Constipation [Unknown]
  - Dizziness [Recovered/Resolved]
  - Fatigue [Unknown]
  - Blood pressure increased [Unknown]
  - Hyperglycaemia [Unknown]
  - Nausea [Not Recovered/Not Resolved]
  - Abnormal dreams [Unknown]
  - Depressed mood [Unknown]
  - Tachyphrenia [Unknown]
  - Anxiety [Unknown]
  - Haemorrhoids [Unknown]
  - Tremor [Unknown]
  - Poor quality sleep [Unknown]
  - Somnolence [Unknown]
  - Feeling abnormal [Unknown]
  - Pollakiuria [Unknown]

NARRATIVE: CASE EVENT DATE: 20220101
